FAERS Safety Report 6261262-1 (Version None)
Quarter: 2009Q3

REPORT INFORMATION
  Report Type: 
  Country: None (occurrence: None)
  Receive Date: 20090709
  Receipt Date: 20090310
  Transmission Date: 20100115
  Serious: No
  Sender: FDA-Public Use
  Company Number: US-KINGPHARMUSA00001-K200900267

PATIENT
  Sex: Female
  Weight: 63.492 kg

DRUGS (2)
  1. LEVOXYL [Suspect]
     Indication: AUTOIMMUNE THYROIDITIS
     Dosage: UNK, QD
     Route: 048
  2. VITAMINS                           /90003601/ [Concomitant]

REACTIONS (5)
  - BLOOD THYROID STIMULATING HORMONE INCREASED [None]
  - FEELING COLD [None]
  - HYPERHIDROSIS [None]
  - MUSCLE SPASMS [None]
  - WEIGHT INCREASED [None]
